FAERS Safety Report 9844667 (Version 2)
Quarter: 2014Q1

REPORT INFORMATION
  Report Type: Spontaneous
  Country: KR (occurrence: KR)
  Receive Date: 20140127
  Receipt Date: 20140127
  Transmission Date: 20141002
  Serious: Yes (Other)
  Sender: FDA-Public Use
  Company Number: KR-RANBAXY-2013RR-76976

PATIENT
  Age: 79 Year
  Sex: Female

DRUGS (3)
  1. DONEPEZIL [Suspect]
     Indication: DEMENTIA
     Dosage: 5 MG
     Route: 065
  2. DONEPEZIL [Suspect]
     Indication: DEMENTIA
     Dosage: 10 MG
     Route: 065
  3. LEVODOPA [Concomitant]
     Indication: PARKINSON^S DISEASE
     Dosage: 250 MG, BID
     Route: 065

REACTIONS (1)
  - Torticollis [Recovered/Resolved]
